FAERS Safety Report 7928422-2 (Version None)
Quarter: 2011Q4

REPORT INFORMATION
  Report Type: 
  Country: None (occurrence: None)
  Receive Date: 20111118
  Receipt Date: 20110105
  Transmission Date: 20120403
  Serious: No
  Sender: FDA-Public Use
  Company Number: US-AMGEN-USASP2011000706

PATIENT
  Age: 72 Year
  Sex: Female

DRUGS (1)
  1. ENBREL [Suspect]
     Indication: RHEUMATOID ARTHRITIS
     Dosage: 50 MG, QWK
     Dates: start: 20050401

REACTIONS (8)
  - ARTHRALGIA [None]
  - PAIN IN EXTREMITY [None]
  - PYREXIA [None]
  - PRODUCTIVE COUGH [None]
  - INFECTION [None]
  - MUSCULOSKELETAL STIFFNESS [None]
  - RHINORRHOEA [None]
  - LACRIMATION INCREASED [None]
